FAERS Safety Report 7361645-2 (Version None)
Quarter: 2011Q1

REPORT INFORMATION
  Report Type: 
  Country: None (occurrence: None)
  Receive Date: 20110318
  Receipt Date: 20110308
  Transmission Date: 20110831
  Serious: No
  Sender: FDA-Public Use
  Company Number: US-JNJFOC-20110304318

PATIENT
  Sex: Female
  Weight: 86.18 kg

DRUGS (5)
  1. OXYCONTIN [Concomitant]
     Indication: PAIN
  2. DURAGESIC-50 [Suspect]
     Route: 062
  3. UNKNOWN MEDICATION [Concomitant]
  4. DURAGESIC-50 [Suspect]
     Indication: PAIN
     Route: 062
  5. FENTANYL-100 [Suspect]
     Indication: PAIN

REACTIONS (7)
  - WITHDRAWAL SYNDROME [None]
  - DRUG INEFFECTIVE [None]
  - FEELING ABNORMAL [None]
  - INCORRECT DRUG ADMINISTRATION DURATION [None]
  - HYPERSOMNIA [None]
  - DRUG EFFECT DECREASED [None]
  - INCORRECT DRUG ADMINISTRATION RATE [None]
